FAERS Safety Report 23166986 (Version 1)
Quarter: 2023Q4

REPORT INFORMATION
  Report Type: Spontaneous
  Country: TW (occurrence: TW)
  Receive Date: 20231109
  Receipt Date: 20231109
  Transmission Date: 20240109
  Serious: Yes (Death, Hospitalization, Other)
  Sender: FDA-Public Use
  Company Number: TW-TAKEDA-2023TUS105987

PATIENT
  Sex: Male
  Weight: 60 kg

DRUGS (3)
  1. PANTOPRAZOLE SODIUM [Suspect]
     Active Substance: PANTOPRAZOLE SODIUM
     Indication: Stress ulcer
     Dosage: 40 MILLIGRAM, QD
     Route: 042
     Dates: start: 20231014, end: 20231017
  2. SEVOFLURANE [Concomitant]
     Active Substance: SEVOFLURANE
     Indication: Anaesthesia
     Dosage: UNK, LIQUID
     Route: 050
  3. ULSTOP [FAMOTIDINE] [Concomitant]
     Dosage: 10 MILLIGRAM, QD

REACTIONS (4)
  - Hepatitis fulminant [Fatal]
  - Cardiac arrest [Unknown]
  - Haemodynamic instability [Unknown]
  - Multiple organ dysfunction syndrome [Unknown]

NARRATIVE: CASE EVENT DATE: 20231001
